FAERS Safety Report 7406109-2 (Version None)
Quarter: 2011Q2

REPORT INFORMATION
  Report Type: 
  Country: None (occurrence: None)
  Receive Date: 20110411
  Receipt Date: 20110328
  Transmission Date: 20111010
  Serious: Yes (Other)
  Sender: FDA-Public Use
  Company Number: US-ELI_LILLY_AND_COMPANY-US201104002822

PATIENT

DRUGS (3)
  1. BEVACIZUMAB [Concomitant]
  2. CAPECITABINE [Concomitant]
  3. GEMCITABINE HYDROCHLORIDE [Suspect]
     Indication: RENAL CANCER METASTATIC

REACTIONS (1)
  - PULMONARY EMBOLISM [None]
